FAERS Safety Report 10308876 (Version 4)
Quarter: 2014Q3

REPORT INFORMATION
  Report Type: Spontaneous
  Country: JP (occurrence: JP)
  Receive Date: 20140716
  Receipt Date: 20140820
  Transmission Date: 20150326
  Serious: Yes (Death, Life-Threatening, Other)
  Sender: FDA-Public Use
  Company Number: JP-OTSUKA-JP-2014-15161

PATIENT
  Age: 74 Year
  Sex: Male

DRUGS (7)
  1. LASIX M [Concomitant]
     Active Substance: FUROSEMIDE
     Indication: CARDIAC FAILURE
     Dosage: 10 MG MILLIGRAM(S), DAILY DOSE
     Route: 042
     Dates: start: 20140606, end: 20140614
  2. HANP [Concomitant]
     Active Substance: CARPERITIDE
     Dosage: 10 MG MILLIGRAM(S), Q1HR
     Route: 041
     Dates: start: 20140617, end: 20140620
  3. SAMSCA [Suspect]
     Active Substance: TOLVAPTAN
     Indication: CARDIAC FAILURE CHRONIC
     Dosage: 7.5 MG MILLIGRAM(S), DAILY DOSE
     Route: 048
     Dates: start: 20140617, end: 20140620
  4. LASIX M [Concomitant]
     Active Substance: FUROSEMIDE
     Indication: CARDIAC FAILURE
     Dosage: 10 MG MILLIGRAM(S), DAILY DOSE
     Route: 042
     Dates: start: 20140617, end: 20140621
  5. DOPAMINE [Concomitant]
     Active Substance: DOPAMINE\DOPAMINE HYDROCHLORIDE
     Indication: CARDIAC FAILURE
     Dosage: UNK
     Route: 041
     Dates: start: 20140617, end: 20140625
  6. GASTER [Concomitant]
     Active Substance: FAMOTIDINE
     Dosage: 20 MG MILLIGRAM(S), DAILY DOSE
     Route: 042
     Dates: start: 20140614, end: 20140625
  7. ZOSYN [Concomitant]
     Active Substance: PIPERACILLIN SODIUM\TAZOBACTAM SODIUM
     Dosage: 13.5 G GRAM(S), DAILY DOSE
     Route: 042
     Dates: start: 20140617, end: 20140620

REACTIONS (3)
  - Sepsis [Fatal]
  - Disseminated intravascular coagulation [Fatal]
  - Hypernatraemia [Unknown]

NARRATIVE: CASE EVENT DATE: 20140618
